FAERS Safety Report 7108862-4 (Version None)
Quarter: 2010Q4

REPORT INFORMATION
  Report Type: 
  Country: None (occurrence: None)
  Receive Date: 20101117
  Receipt Date: 20101112
  Transmission Date: 20110411
  Serious: Yes (Other)
  Sender: FDA-Public Use
  Company Number: US-TEVA-255266USA

PATIENT
  Sex: Female
  Weight: 104.42 kg

DRUGS (8)
  1. COPAXONE [Suspect]
     Indication: MULTIPLE SCLEROSIS
     Route: 058
     Dates: start: 20020503, end: 20101111
  2. BACLOFEN [Concomitant]
  3. FENOFIBRATE [Concomitant]
  4. OXYBUTYNIN [Concomitant]
  5. SIMVASTATIN [Concomitant]
  6. FISH OIL [Concomitant]
  7. CALCIUM [Concomitant]
  8. VITAMIN TAB [Concomitant]

REACTIONS (6)
  - DRUG HYPERSENSITIVITY [None]
  - INJECTION SITE HAEMATOMA [None]
  - INJECTION SITE MASS [None]
  - INJECTION SITE PAIN [None]
  - NECROSIS [None]
  - PAIN [None]
